FAERS Safety Report 8773766 (Version 1)
Quarter: 2012Q4

REPORT INFORMATION
  Report Type: 
  Country: TN (occurrence: TN)
  Receive Date: 20120907
  Receipt Date: 20120907
  Transmission Date: 20130627
  Serious: Yes (Death, Other)
  Sender: FDA-Public Use
  Company Number: TN-GENZYME-POMP-1002419

PATIENT

DRUGS (2)
  1. MYOZYME [Suspect]
     Indication: GLYCOGEN STORAGE DISEASE TYPE II
     Dosage: UNK
     Route: 042
     Dates: start: 201206
  2. MYOZYME [Suspect]
     Dosage: UNK
     Route: 042
     Dates: end: 201112

REACTIONS (2)
  - Asthmatic crisis [Fatal]
  - Hypersensitivity [Unknown]
